FAERS Safety Report 16619337 (Version 9)
Quarter: 2019Q3

REPORT INFORMATION
  Report Type: Report from Study
  Country: US (occurrence: US)
  Receive Date: 20190723
  Receipt Date: 20190916
  Transmission Date: 20191004
  Serious: Yes (Hospitalization, Other)
  Sender: FDA-Public Use
  Company Number: US-BIOGEN-2019BI00760338

PATIENT
  Age: 48 Year
  Sex: Female

DRUGS (23)
  1. FLONASE [Concomitant]
     Active Substance: FLUTICASONE PROPIONATE
     Indication: PRODUCT USED FOR UNKNOWN INDICATION
     Route: 065
  2. BENZODIAZEPINE [Concomitant]
     Active Substance: BENZODIAZEPINE
     Indication: PRODUCT USED FOR UNKNOWN INDICATION
     Route: 065
  3. BENTYL [Concomitant]
     Active Substance: DICYCLOMINE HYDROCHLORIDE
     Indication: GASTRIC DISORDER
     Route: 065
  4. ZOFRAN [Concomitant]
     Active Substance: ONDANSETRON HYDROCHLORIDE
     Indication: GASTROINTESTINAL DISORDER
     Dosage: 4MG/2ML
     Route: 065
  5. CELEBREX [Concomitant]
     Active Substance: CELECOXIB
     Indication: PRODUCT USED FOR UNKNOWN INDICATION
     Route: 065
  6. PROAIR HFA [Concomitant]
     Active Substance: ALBUTEROL SULFATE
     Indication: PRODUCT USED FOR UNKNOWN INDICATION
     Route: 065
  7. PROTONIX [Concomitant]
     Active Substance: PANTOPRAZOLE SODIUM
     Indication: ABDOMINAL PAIN UPPER
     Route: 065
  8. ELAVIL [Concomitant]
     Active Substance: AMITRIPTYLINE HYDROCHLORIDE
     Indication: PRODUCT USED FOR UNKNOWN INDICATION
     Route: 065
  9. ZYRTEC [Concomitant]
     Active Substance: CETIRIZINE HYDROCHLORIDE
     Indication: PRODUCT USED FOR UNKNOWN INDICATION
     Route: 065
  10. QVAR [Concomitant]
     Active Substance: BECLOMETHASONE DIPROPIONATE
     Indication: PRODUCT USED FOR UNKNOWN INDICATION
     Route: 065
  11. PROPRANOLOL [Concomitant]
     Active Substance: PROPRANOLOL HYDROCHLORIDE
     Indication: PRODUCT USED FOR UNKNOWN INDICATION
     Dosage: 20MG/5 ML
     Route: 065
  12. TRAZODONE HYDROCHLORIDE. [Concomitant]
     Active Substance: TRAZODONE HYDROCHLORIDE
     Indication: PRODUCT USED FOR UNKNOWN INDICATION
     Route: 065
  13. TECFIDERA [Suspect]
     Active Substance: DIMETHYL FUMARATE
     Dosage: MAINTENANCE DOSE
     Route: 048
     Dates: start: 20190713
  14. LUNESTA [Concomitant]
     Active Substance: ESZOPICLONE
     Indication: PRODUCT USED FOR UNKNOWN INDICATION
     Route: 065
  15. VITAMIN B12 [Concomitant]
     Active Substance: CYANOCOBALAMIN
     Indication: PRODUCT USED FOR UNKNOWN INDICATION
     Route: 065
  16. TECFIDERA [Suspect]
     Active Substance: DIMETHYL FUMARATE
     Dosage: STARTING DOSE
     Route: 048
     Dates: start: 20190706
  17. GABAPENTIN. [Concomitant]
     Active Substance: GABAPENTIN
     Indication: HEADACHE
     Route: 065
  18. RANITIDINE. [Concomitant]
     Active Substance: RANITIDINE
     Indication: ABDOMINAL PAIN UPPER
     Route: 065
  19. SINGULAIR [Concomitant]
     Active Substance: MONTELUKAST SODIUM
     Indication: PRODUCT USED FOR UNKNOWN INDICATION
     Route: 065
  20. DEPO-PROVERA [Concomitant]
     Active Substance: MEDROXYPROGESTERONE ACETATE
     Indication: PRODUCT USED FOR UNKNOWN INDICATION
     Dosage: 400MG/ML
     Route: 065
  21. TECFIDERA [Suspect]
     Active Substance: DIMETHYL FUMARATE
     Indication: MULTIPLE SCLEROSIS
     Dosage: STARTING DOSE
     Route: 048
     Dates: start: 20190702
  22. VITAMIN D3 [Concomitant]
     Active Substance: CHOLECALCIFEROL
     Indication: PRODUCT USED FOR UNKNOWN INDICATION
     Route: 065
  23. TIZANIDINE. [Concomitant]
     Active Substance: TIZANIDINE
     Indication: MUSCLE SPASMS
     Route: 065

REACTIONS (56)
  - Fatigue [Unknown]
  - Dysphemia [Unknown]
  - Mental disorder [Unknown]
  - Mobility decreased [Not Recovered/Not Resolved]
  - Dysstasia [Not Recovered/Not Resolved]
  - Wheezing [Recovered/Resolved]
  - Abdominal pain upper [Not Recovered/Not Resolved]
  - Drug ineffective [Unknown]
  - Tearfulness [Unknown]
  - Fear [Unknown]
  - Pain of skin [Recovered/Resolved with Sequelae]
  - Flatulence [Not Recovered/Not Resolved]
  - Dyspnoea [Unknown]
  - Abdominal discomfort [Unknown]
  - Multiple sclerosis relapse [Recovered/Resolved]
  - General physical health deterioration [Not Recovered/Not Resolved]
  - Dysarthria [Unknown]
  - Emotional disorder [Unknown]
  - Inappropriate schedule of product administration [Unknown]
  - Insomnia [Unknown]
  - Arthritis [Not Recovered/Not Resolved]
  - Gait disturbance [Not Recovered/Not Resolved]
  - Dysarthria [Unknown]
  - Abdominal distension [Not Recovered/Not Resolved]
  - Asthenia [Not Recovered/Not Resolved]
  - Erythema [Recovered/Resolved with Sequelae]
  - Visual impairment [Unknown]
  - Memory impairment [Unknown]
  - Hypovitaminosis [Unknown]
  - Skin warm [Recovered/Resolved with Sequelae]
  - Nausea [Not Recovered/Not Resolved]
  - Thinking abnormal [Unknown]
  - Depression [Unknown]
  - Anger [Unknown]
  - Fall [Recovered/Resolved]
  - Muscle spasms [Not Recovered/Not Resolved]
  - Flushing [Recovered/Resolved]
  - Burning sensation [Not Recovered/Not Resolved]
  - Hypoaesthesia [Unknown]
  - Mental impairment [Unknown]
  - Aphasia [Unknown]
  - Anxiety [Unknown]
  - Urine output increased [Not Recovered/Not Resolved]
  - Hallucination [Unknown]
  - Inflammation [Unknown]
  - Palpitations [Unknown]
  - Feeling abnormal [Unknown]
  - Nervousness [Unknown]
  - Panic attack [Unknown]
  - Fluid retention [Not Recovered/Not Resolved]
  - Dizziness [Unknown]
  - Pain [Unknown]
  - Paraesthesia [Recovered/Resolved]
  - Vision blurred [Unknown]
  - Contusion [Unknown]
  - Gastrointestinal disorder [Not Recovered/Not Resolved]

NARRATIVE: CASE EVENT DATE: 201907
